FAERS Safety Report 17872074 (Version 1)
Quarter: 2020Q2

REPORT INFORMATION
  Report Type: Spontaneous
  Country: US (occurrence: US)
  Receive Date: 20200608
  Receipt Date: 20200608
  Transmission Date: 20200714
  Serious: No
  Sender: FDA-Public Use
  Company Number: US-SUN PHARMACEUTICAL INDUSTRIES LTD-2020R1-239370

PATIENT
  Sex: Male

DRUGS (1)
  1. CEQUA [Suspect]
     Active Substance: CYCLOSPORINE
     Indication: PRODUCT USED FOR UNKNOWN INDICATION
     Dosage: UNK
     Route: 047

REACTIONS (6)
  - Eye pain [Unknown]
  - Eye irritation [Unknown]
  - Erythema of eyelid [Unknown]
  - Lacrimation increased [Unknown]
  - Swelling of eyelid [Unknown]
  - Ocular hyperaemia [Unknown]
